FAERS Safety Report 11696851 (Version 4)
Quarter: 2016Q1

REPORT INFORMATION
  Report Type: Spontaneous
  Country: RU (occurrence: RU)
  Receive Date: 20151104
  Receipt Date: 20160211
  Transmission Date: 20160525
  Serious: Yes (Hospitalization)
  Sender: FDA-Public Use
  Company Number: RU-JNJFOC-20150914743

PATIENT
  Age: 33 Year
  Sex: Male
  Weight: 66 kg

DRUGS (13)
  1. TERALIGEN [Concomitant]
     Indication: STRESS
     Route: 065
  2. MOVALIS [Concomitant]
     Active Substance: MELOXICAM
     Indication: STRESS
     Route: 065
  3. SIRDALUD [Concomitant]
     Active Substance: TIZANIDINE
     Indication: STRESS
     Route: 065
  4. VALIUM [Concomitant]
     Active Substance: DIAZEPAM
     Indication: STRESS
     Route: 065
  5. ARCOXIA [Concomitant]
     Active Substance: ETORICOXIB
     Indication: STRESS
     Route: 065
  6. TOLPERISONE [Concomitant]
     Active Substance: TOLPERISONE
     Indication: STRESS
     Route: 065
  7. REMICADE [Suspect]
     Active Substance: INFLIXIMAB
     Indication: ANKYLOSING SPONDYLITIS
     Route: 042
     Dates: start: 201501, end: 2015
  8. IDEBENONE [Concomitant]
     Active Substance: IDEBENONE
     Indication: STRESS
     Route: 065
  9. CARBAMAZEPINE. [Concomitant]
     Active Substance: CARBAMAZEPINE
     Indication: STRESS
     Route: 065
  10. ASPARCAM [Concomitant]
     Indication: STRESS
     Route: 065
  11. FEVARIN [Concomitant]
     Active Substance: FLUVOXAMINE MALEATE
     Indication: STRESS
     Route: 065
  12. CLONAZEPAM. [Concomitant]
     Active Substance: CLONAZEPAM
     Indication: STRESS
     Route: 065
  13. REMICADE [Suspect]
     Active Substance: INFLIXIMAB
     Indication: ANKYLOSING SPONDYLITIS
     Route: 042
     Dates: start: 201204

REACTIONS (26)
  - Ear disorder [Not Recovered/Not Resolved]
  - Headache [Unknown]
  - Hypoaesthesia [Not Recovered/Not Resolved]
  - Palpitations [Unknown]
  - Muscle spasms [Not Recovered/Not Resolved]
  - Paraesthesia [Unknown]
  - Bronchospasm [Unknown]
  - Dyskinesia [Not Recovered/Not Resolved]
  - Insomnia [Not Recovered/Not Resolved]
  - Infusion related reaction [Unknown]
  - Condition aggravated [Not Recovered/Not Resolved]
  - Dyspnoea [Unknown]
  - Hypertension [Unknown]
  - Chest pain [Unknown]
  - Pain in extremity [Not Recovered/Not Resolved]
  - Wheezing [Unknown]
  - Product quality issue [Unknown]
  - Drug ineffective [Unknown]
  - Sleep disorder [Not Recovered/Not Resolved]
  - Hypoacusis [Not Recovered/Not Resolved]
  - Hyperhidrosis [Unknown]
  - Muscle atrophy [Not Recovered/Not Resolved]
  - Limb discomfort [Not Recovered/Not Resolved]
  - Muscle twitching [Not Recovered/Not Resolved]
  - Pyrexia [Unknown]
  - Muscular weakness [Not Recovered/Not Resolved]

NARRATIVE: CASE EVENT DATE: 2015
